FAERS Safety Report 10258293 (Version 1)
Quarter: 2014Q2

REPORT INFORMATION
  Report Type: Spontaneous
  Country: US (occurrence: US)
  Receive Date: 20140625
  Receipt Date: 20140625
  Transmission Date: 20141212
  Serious: No
  Sender: FDA-Public Use
  Company Number: US-009507513-1405USA008533

PATIENT
  Sex: Female

DRUGS (1)
  1. TINACTIN JOCK ITCH POWDER SPRAY [Suspect]
     Indication: LACERATION
     Dosage: UNK, UNKNOWN
     Route: 061

REACTIONS (2)
  - Localised infection [Not Recovered/Not Resolved]
  - Off label use [Unknown]
